FAERS Safety Report 15774326 (Version 2)
Quarter: 2019Q1

REPORT INFORMATION
  Report Type: Spontaneous
  Country: DE (occurrence: DE)
  Receive Date: 20181229
  Receipt Date: 20190211
  Transmission Date: 20190417
  Serious: Yes (Hospitalization, Other)
  Sender: FDA-Public Use
  Company Number: DE-ACCORD-098779

PATIENT
  Age: 89 Year
  Sex: Male

DRUGS (4)
  1. ENALAPRIL MALEATE AND HYDROCHLOROTHIAZIDE [Suspect]
     Active Substance: ENALAPRIL MALEATE\HYDROCHLOROTHIAZIDE
     Indication: HYPERTENSION
     Dosage: 1 DF QD FOR AT LEAST 20 YEARS, HALF TABLET IN MORNING AND HALF TABLET IN EVENINGS?IF?BLOOD?PRESSURE
     Route: 048
     Dates: start: 20180103
  2. ENABETA COMP [Suspect]
     Active Substance: ENALAPRIL MALEATE\HYDROCHLOROTHIAZIDE
     Indication: PRODUCT USED FOR UNKNOWN INDICATION
     Dosage: 1 DF QD FOR AT LEAST 20 YEARS.
     Route: 048
  3. AMLODIPINE [Suspect]
     Active Substance: AMLODIPINE BESYLATE
     Indication: HYPERTENSION
     Dosage: 1?DF??QD
     Route: 065
  4. ENALAPRIL/HYDROCHLOROTHIAZIDE [Suspect]
     Active Substance: ENALAPRIL MALEATE\HYDROCHLOROTHIAZIDE
     Indication: HYPERTENSION
     Dosage: 1 DF, QD, PRESCRIBED 1/2 TABLET IN THE MORNING AND ALSO 1/2 TABLET IN THE EVENINGS IF BLOOD PRESSURE
     Route: 048
     Dates: start: 20180103

REACTIONS (3)
  - Incorrect dose administered [Unknown]
  - Loss of consciousness [Unknown]
  - Blood pressure decreased [Unknown]
